FAERS Safety Report 9834564 (Version 1)
Quarter: 2014Q1

REPORT INFORMATION
  Report Type: Spontaneous
  Country: US (occurrence: US)
  Receive Date: 20140122
  Receipt Date: 20140122
  Transmission Date: 20141002
  Serious: No
  Sender: FDA-Public Use
  Company Number: US-009507513-1401USA009077

PATIENT
  Sex: Male

DRUGS (1)
  1. PEGINTRON [Suspect]
     Indication: HEPATITIS C
     Dosage: 0.5 CC, UNK
     Route: 058
     Dates: start: 20140118

REACTIONS (6)
  - Feeling hot [Unknown]
  - Dry throat [Unknown]
  - Throat tightness [Unknown]
  - Chest discomfort [Unknown]
  - Abdominal discomfort [Unknown]
  - Chills [Unknown]
